FAERS Safety Report 16959255 (Version 1)
Quarter: 2019Q4

REPORT INFORMATION
  Report Type: Report from Study
  Country: US (occurrence: US)
  Receive Date: 20191024
  Receipt Date: 20191024
  Transmission Date: 20200122
  Serious: Yes (Other)
  Sender: FDA-Public Use
  Company Number: US-ASTRAZENECA-2019SF50512

PATIENT
  Sex: Female

DRUGS (1)
  1. TAGRISSO [Suspect]
     Active Substance: OSIMERTINIB
     Indication: NON-SMALL CELL LUNG CANCER
     Route: 048
     Dates: start: 20191001

REACTIONS (5)
  - Pneumothorax [Unknown]
  - Pain [Not Recovered/Not Resolved]
  - Pulmonary oedema [Unknown]
  - Oral pain [Unknown]
  - Chills [Unknown]
